FAERS Safety Report 12624811 (Version 8)
Quarter: 2017Q2

REPORT INFORMATION
  Report Type: Spontaneous
  Country: US (occurrence: US)
  Receive Date: 20160805
  Receipt Date: 20170619
  Transmission Date: 20170830
  Serious: Yes (Life-Threatening, Congenital Anomaly, Other)
  Sender: FDA-Public Use
  Company Number: PHHY2015US130177

PATIENT
  Sex: Male

DRUGS (2)
  1. ONDANSETRON HYDROCHLORIDE. [Suspect]
     Active Substance: ONDANSETRON HYDROCHLORIDE
     Indication: FOETAL EXPOSURE DURING PREGNANCY
     Route: 064
  2. ONDANSETRON [Suspect]
     Active Substance: ONDANSETRON
     Indication: FOETAL EXPOSURE DURING PREGNANCY
     Dosage: MOTHER^S DOSE: 8 MG, PER DAY (QD)
     Route: 064

REACTIONS (12)
  - Congenital hand malformation [Unknown]
  - Double outlet right ventricle [Unknown]
  - Foetal exposure during pregnancy [Unknown]
  - Congenital anomaly [Unknown]
  - Fever neonatal [Unknown]
  - Diarrhoea neonatal [Unknown]
  - Heterotaxia [Unknown]
  - Intestinal malrotation [Unknown]
  - Atrioventricular septal defect [Unknown]
  - Pulmonary valve stenosis congenital [Unknown]
  - Heart disease congenital [Unknown]
  - Dysphagia [Unknown]
